FAERS Safety Report 8777439 (Version 1)
Quarter: 2012Q4

REPORT INFORMATION
  Report Type: Report from Study
  Country: ES (occurrence: ES)
  Receive Date: 20120911
  Receipt Date: 20120911
  Transmission Date: 20130627
  Serious: Yes (Hospitalization)
  Sender: FDA-Public Use
  Company Number: ES-MERCK-1209ESP003335

PATIENT

DRUGS (2)
  1. COSOPT 20 MG/ML + 5 MG/ML COLIRIO EN SOLUCI?N, ENVASES UNIDOSIS [Suspect]
     Route: 047
     Dates: start: 2011, end: 20110826
  2. MASDIL [Suspect]
     Indication: HYPERTENSIVE HEART DISEASE
     Dosage: 60 mg, bid
     Route: 048
     Dates: start: 2011, end: 20110826

REACTIONS (5)
  - Atrial fibrillation [Recovered/Resolved]
  - Syncope [Recovered/Resolved]
  - Nodal rhythm [Recovered/Resolved]
  - Supraventricular extrasystoles [None]
  - Heart rate decreased [None]
